FAERS Safety Report 6709903-6 (Version None)
Quarter: 2010Q2

REPORT INFORMATION
  Report Type: 
  Country: None (occurrence: None)
  Receive Date: 20100503
  Receipt Date: 20100503
  Transmission Date: 20101027
  Serious: Yes (Other)
  Sender: FDA-Public Use
  Company Number: None

PATIENT
  Age: 5 Month
  Sex: Female
  Weight: 6.2596 kg

DRUGS (1)
  1. CONCENTRATED TYLENOL INFANT DROPS [Suspect]
     Indication: TEETHING
     Dosage: .6 ML 6 HOURS PO
     Route: 048
     Dates: start: 20100416, end: 20100501

REACTIONS (4)
  - CRYING [None]
  - FATIGUE [None]
  - PRODUCT QUALITY ISSUE [None]
  - SCREAMING [None]
